FAERS Safety Report 18480775 (Version 1)
Quarter: 2020Q4

REPORT INFORMATION
  Report Type: Spontaneous
  Country: US (occurrence: US)
  Receive Date: 20201109
  Receipt Date: 20201109
  Transmission Date: 20210114
  Serious: Yes (Death, Life-Threatening, Hospitalization, Other)
  Sender: FDA-Public Use
  Company Number: US-MYLANLABS-2020M1093162

PATIENT
  Age: 44 Year
  Sex: Female

DRUGS (6)
  1. ENTECAVIR. [Suspect]
     Active Substance: ENTECAVIR
     Indication: HEPATITIS B REACTIVATION
     Dosage: 1 MILLIGRAM, QD
     Route: 048
  2. ENOXAPARIN [Concomitant]
     Active Substance: ENOXAPARIN
     Indication: ANTICOAGULANT THERAPY
     Dosage: UNK, BID
     Route: 065
  3. CARBOPLATIN. [Suspect]
     Active Substance: CARBOPLATIN
     Indication: CERVIX CARCINOMA STAGE III
     Dosage: RECEIVED 1 DOSE
     Route: 065
  4. LACTULOSE. [Suspect]
     Active Substance: LACTULOSE
     Indication: HEPATITIS B REACTIVATION
     Dosage: UNK
     Route: 065
  5. RIFAXIMIN. [Suspect]
     Active Substance: RIFAXIMIN
     Indication: HEPATITIS B REACTIVATION
     Dosage: UNK
     Route: 065
  6. CISPLATIN. [Suspect]
     Active Substance: CISPLATIN
     Indication: CERVIX CARCINOMA STAGE III
     Dosage: 40 MILLIGRAM/SQ. METER, QW RECEIVED 3 DOSES
     Route: 065

REACTIONS (12)
  - Ototoxicity [Unknown]
  - Cardiac arrest [Fatal]
  - Acute hepatic failure [Unknown]
  - Hypovolaemic shock [Unknown]
  - Mental status changes [Unknown]
  - Hypoglycaemia [Unknown]
  - Metabolic acidosis [Unknown]
  - Drug ineffective [Unknown]
  - Hepatitis B reactivation [Fatal]
  - Ventricular tachycardia [Unknown]
  - Coagulopathy [Unknown]
  - Encephalopathy [Unknown]
